FAERS Safety Report 21826241 (Version 1)
Quarter: 2023Q1

REPORT INFORMATION
  Report Type: Spontaneous
  Country: US (occurrence: US)
  Receive Date: 20230106
  Receipt Date: 20230106
  Transmission Date: 20230418
  Serious: No
  Sender: FDA-Public Use
  Company Number: US-SA-SAC20230105000483

PATIENT
  Sex: Male

DRUGS (2)
  1. LEFLUNOMIDE [Suspect]
     Active Substance: LEFLUNOMIDE
     Dosage: UNK
     Route: 065
  2. XELJANZ XR [Concomitant]
     Active Substance: TOFACITINIB CITRATE

REACTIONS (8)
  - Crying [Unknown]
  - Depression [Unknown]
  - Discouragement [Unknown]
  - Memory impairment [Unknown]
  - Back pain [Recovered/Resolved]
  - Pulmonary pain [Recovered/Resolved]
  - Chest pain [Recovered/Resolved]
  - Product dose omission issue [Unknown]
